FAERS Safety Report 25174658 (Version 3)
Quarter: 2025Q3

REPORT INFORMATION
  Report Type: Report from Study
  Country: US (occurrence: US)
  Receive Date: 20250408
  Receipt Date: 20250722
  Transmission Date: 20251021
  Serious: Yes (Other)
  Sender: TAIHO ONCOLOGY INC
  Company Number: US-TAIHOP-2025-003461

PATIENT
  Age: 53 Year
  Sex: Male
  Weight: 55.34 kg

DRUGS (4)
  1. LONSURF [Suspect]
     Active Substance: TIPIRACIL HYDROCHLORIDE\TRIFLURIDINE
     Indication: Rectal cancer
     Dosage: FORM STRENGTH: 15MG AND 20MG?CYCLE 1
     Route: 048
     Dates: start: 20250307
  2. LONSURF [Suspect]
     Active Substance: TIPIRACIL HYDROCHLORIDE\TRIFLURIDINE
     Indication: Colorectal cancer
  3. ATORVASTATIN [Concomitant]
     Active Substance: ATORVASTATIN
     Indication: Product used for unknown indication
  4. LISINOPRIL [Concomitant]
     Active Substance: LISINOPRIL
     Indication: Product used for unknown indication

REACTIONS (7)
  - Rectal haemorrhage [Unknown]
  - Anxiety [Unknown]
  - Asthenia [Unknown]
  - Nausea [Unknown]
  - Abdominal pain [Unknown]
  - Stoma site pain [Unknown]
  - Inappropriate schedule of product administration [Unknown]
